FAERS Safety Report 10190554 (Version 1)
Quarter: 2014Q2

REPORT INFORMATION
  Report Type: Spontaneous
  Country: FR (occurrence: FR)
  Receive Date: 20140523
  Receipt Date: 20140523
  Transmission Date: 20141212
  Serious: Yes (Hospitalization)
  Sender: FDA-Public Use
  Company Number: FR-ROCHE-1404754

PATIENT
  Age: 76 Year
  Sex: Female

DRUGS (3)
  1. AVASTIN [Suspect]
     Indication: BREAST CANCER
     Route: 042
     Dates: start: 20140131
  2. AVASTIN [Suspect]
     Route: 042
     Dates: start: 20140314
  3. AVASTIN [Suspect]
     Route: 042
     Dates: start: 20140409

REACTIONS (4)
  - Large intestine perforation [Recovered/Resolved]
  - Pneumoperitoneum [Recovered/Resolved]
  - Peritonitis [Recovering/Resolving]
  - Septic shock [Not Recovered/Not Resolved]
